FAERS Safety Report 8795797 (Version 1)
Quarter: 2012Q4

REPORT INFORMATION
  Report Type: 
  Country: US (occurrence: US)
  Receive Date: 20120920
  Receipt Date: 20120920
  Transmission Date: 20130627
  Serious: No
  Sender: FDA-Public Use
  Company Number: US-PFIZER INC-2012232855

PATIENT
  Age: 57 Year
  Sex: Female
  Weight: 105 kg

DRUGS (8)
  1. GEODON [Suspect]
     Indication: BIPOLAR II DISORDER
     Dosage: 20 mg, 1x/day
     Dates: start: 20120807, end: 201208
  2. GEODON [Suspect]
     Dosage: 40 mg, 1x/day
     Dates: start: 201208, end: 201208
  3. GEODON [Suspect]
     Dosage: 60 mg, 1x/day
     Dates: start: 201208, end: 20120909
  4. GEODON [Suspect]
     Dosage: 80 mg, 1x/day
     Dates: start: 20120909, end: 20120909
  5. GEODON [Suspect]
     Dosage: 60 mg, 1x/day
     Dates: start: 20120910, end: 20120917
  6. GEODON [Suspect]
     Dosage: 20 mg, 2x/day
     Dates: start: 20120918
  7. LAMICTAL [Concomitant]
     Indication: AFFECTIVE DISORDER
     Dosage: 200 mg, 1x/day
  8. AMBIEN [Concomitant]
     Dosage: 10 mg, as needed

REACTIONS (1)
  - Drug intolerance [Unknown]
